FAERS Safety Report 21350281 (Version 4)
Quarter: 2022Q4

REPORT INFORMATION
  Report Type: Spontaneous
  Country: IE (occurrence: IE)
  Receive Date: 20220919
  Receipt Date: 20221201
  Transmission Date: 20230113
  Serious: Yes (Life-Threatening, Hospitalization, Other)
  Sender: FDA-Public Use
  Company Number: IE-NAPPMUNDI-GBR-2022-0101493

PATIENT
  Age: 75 Year
  Sex: Male

DRUGS (18)
  1. NALOXONE HYDROCHLORIDE\OXYCODONE HYDROCHLORIDE [Suspect]
     Active Substance: NALOXONE HYDROCHLORIDE\OXYCODONE HYDROCHLORIDE
     Indication: Analgesic therapy
     Dosage: 70/35 MG, BID
     Route: 065
  2. NALOXONE HYDROCHLORIDE\OXYCODONE HYDROCHLORIDE [Suspect]
     Active Substance: NALOXONE HYDROCHLORIDE\OXYCODONE HYDROCHLORIDE
     Indication: Cancer pain
     Dosage: 35 MG
     Route: 065
  3. NALOXONE HYDROCHLORIDE\OXYCODONE HYDROCHLORIDE [Suspect]
     Active Substance: NALOXONE HYDROCHLORIDE\OXYCODONE HYDROCHLORIDE
     Dosage: 70 MG
     Route: 065
  4. NALOXONE HYDROCHLORIDE\OXYCODONE HYDROCHLORIDE [Suspect]
     Active Substance: NALOXONE HYDROCHLORIDE\OXYCODONE HYDROCHLORIDE
     Dosage: 180 DAILY (90 MG, 2X/DAY (DAY 3)) MG
     Route: 065
  5. OXYCODONE HYDROCHLORIDE [Suspect]
     Active Substance: OXYCODONE HYDROCHLORIDE
     Indication: Pain
     Dosage: 90 MILLIGRAM, BID
  6. OXYCODONE HYDROCHLORIDE [Suspect]
     Active Substance: OXYCODONE HYDROCHLORIDE
     Indication: Cancer pain
     Dosage: 30 MILLIGRAM, Q24H
     Route: 065
  7. OXYCODONE HYDROCHLORIDE [Suspect]
     Active Substance: OXYCODONE HYDROCHLORIDE
     Dosage: 90 MILLIGRAM, DAILY
  8. OXYCODONE HYDROCHLORIDE [Suspect]
     Active Substance: OXYCODONE HYDROCHLORIDE
     Dosage: 180 MILLIGRAM, DAILY, 90 MG 2X/DAY (DAY 3)
  9. OXYCODONE HYDROCHLORIDE [Suspect]
     Active Substance: OXYCODONE HYDROCHLORIDE
     Indication: Analgesic therapy
     Dosage: 20 MILLIGRAM, PRN
     Route: 065
  10. OXYCODONE HYDROCHLORIDE [Suspect]
     Active Substance: OXYCODONE HYDROCHLORIDE
     Indication: Pain
  11. PREGABALIN [Suspect]
     Active Substance: PREGABALIN
     Indication: Analgesic therapy
     Dosage: 100 MILLIGRAM, BID
     Route: 065
  12. PREGABALIN [Suspect]
     Active Substance: PREGABALIN
     Indication: Pain
     Dosage: 150 MILLIGRAM, BID
     Route: 065
  13. PREGABALIN [Suspect]
     Active Substance: PREGABALIN
     Indication: Pain
     Dosage: 100 MG, 2X/DAY
     Route: 065
  14. PREGABALIN [Suspect]
     Active Substance: PREGABALIN
     Dosage: 150 MG, 2X/DAY (DAY 3)
     Route: 065
  15. PREGABALIN [Suspect]
     Active Substance: PREGABALIN
     Dosage: 100 MILLIGRAM, DAILY
     Route: 065
  16. PREGABALIN [Suspect]
     Active Substance: PREGABALIN
     Dosage: 150 MILLIGRAM, DAILY
     Route: 065
  17. HYDROMORPHONE HYDROCHLORIDE [Concomitant]
     Active Substance: HYDROMORPHONE HYDROCHLORIDE
     Indication: Analgesic therapy
     Dosage: 4 MILLIGRAM, 24HOURS COMMENCED
     Route: 065
  18. HYDROMORPHONE HYDROCHLORIDE [Concomitant]
     Active Substance: HYDROMORPHONE HYDROCHLORIDE
     Indication: Analgesic therapy
     Dosage: 4 MILLIGRAM, 24HOURS COMMENCED

REACTIONS (6)
  - Respiratory depression [Recovered/Resolved]
  - Toxicity to various agents [Unknown]
  - Myoclonus [Recovered/Resolved]
  - Respiratory tract infection [Unknown]
  - General physical health deterioration [Recovered/Resolved]
  - Off label use [Unknown]
